FAERS Safety Report 21151555 (Version 1)
Quarter: 2022Q3

REPORT INFORMATION
  Report Type: Spontaneous
  Country: CA (occurrence: CA)
  Receive Date: 20220730
  Receipt Date: 20220730
  Transmission Date: 20221027
  Serious: Yes (Other)
  Sender: FDA-Public Use
  Company Number: None

PATIENT
  Age: 45 Year
  Sex: Female

DRUGS (2)
  1. METHOTREXATE [Suspect]
     Active Substance: METHOTREXATE
     Indication: Product used for unknown indication
     Route: 058
  2. ENTOCORT [Concomitant]
     Active Substance: BUDESONIDE
     Dosage: CAPSULE,?SUSTAINED RELEASE

REACTIONS (5)
  - Drug tolerance decreased [Unknown]
  - Ileal stenosis [Unknown]
  - Infection [Unknown]
  - Product use issue [Unknown]
  - Rash [Unknown]
